FAERS Safety Report 6133860-7 (Version None)
Quarter: 2009Q1

REPORT INFORMATION
  Report Type: 
  Country: None (occurrence: None)
  Receive Date: 20090326
  Receipt Date: 20090317
  Transmission Date: 20090719
  Serious: Yes (Hospitalization)
  Sender: FDA-Public Use
  Company Number: JP-PFIZER INC-2009169836

PATIENT

DRUGS (17)
  1. IRINOTECAN HCL [Suspect]
     Indication: RECTAL CANCER
     Dosage: 322 MG, EVERY 2 WEEKS
     Route: 042
     Dates: start: 20090113
  2. SUNITINIB MALATE [Suspect]
     Indication: RECTAL CANCER
     Dosage: 37.5 MG, 1X/DAY
     Route: 048
     Dates: start: 20090113
  3. FLUOROURACIL [Suspect]
     Indication: RECTAL CANCER
     Dosage: 717 MG, EVERY 2 WEEKS
     Route: 040
     Dates: start: 20090113
  4. FLUOROURACIL [Suspect]
     Dosage: 4303 MG, EVERY 2 WEEKS
     Route: 041
     Dates: start: 20090113
  5. *FOLINIC ACID [Suspect]
     Indication: RECTAL CANCER
     Dosage: 358 MG, EVERY 2 WEEKS
     Route: 042
     Dates: start: 20090113
  6. DOMPERIDONE [Concomitant]
     Dosage: UNK
     Route: 048
     Dates: start: 20090113, end: 20090122
  7. DOMPERIDONE [Concomitant]
     Dosage: UNK
     Route: 054
     Dates: start: 20090119, end: 20090119
  8. LACTATED RINGER'S [Concomitant]
     Dosage: UNK
     Route: 042
     Dates: start: 20090118, end: 20090122
  9. LACTATED RINGER'S [Concomitant]
     Dosage: UNK
     Route: 042
     Dates: start: 20090123, end: 20090123
  10. DEXAMETHASONE SODIUM PHOSPHATE [Concomitant]
     Dosage: UNK
     Route: 042
     Dates: start: 20090119, end: 20090119
  11. METOCLOPRAMIDE HYDROCHLORIDE [Concomitant]
     Dosage: UNK
     Route: 042
     Dates: start: 20090119, end: 20090119
  12. SOLDEM 3A [Concomitant]
     Dosage: UNK
     Route: 042
     Dates: start: 20090119, end: 20090126
  13. SOLDEM 3A [Concomitant]
     Dosage: UNK
     Route: 042
     Dates: start: 20090128, end: 20090128
  14. FAMOTIDINE [Concomitant]
     Dosage: UNK
     Route: 048
     Dates: start: 20090121, end: 20090130
  15. BIO THREE [Concomitant]
     Indication: GASTROINTESTINAL DISORDER
     Dosage: UNK
     Route: 048
     Dates: start: 20090121, end: 20090130
  16. LOPERAMIDE HYDROCHLORIDE [Concomitant]
     Dosage: UNK
     Route: 048
     Dates: start: 20090122, end: 20090126
  17. SCOPOLAMINE [Concomitant]
     Dosage: UNK
     Route: 048
     Dates: start: 20090129, end: 20090129

REACTIONS (2)
  - PNEUMONIA [None]
  - SEPSIS [None]
